FAERS Safety Report 15046697 (Version 2)
Quarter: 2018Q4

REPORT INFORMATION
  Report Type: Spontaneous
  Country: US (occurrence: US)
  Receive Date: 20180621
  Receipt Date: 20181218
  Transmission Date: 20190204
  Serious: Yes (Disabling)
  Sender: FDA-Public Use
  Company Number: US-OTSUKA-2018_016784

PATIENT
  Sex: Male

DRUGS (7)
  1. ARIPIPRAZOLE. [Concomitant]
     Active Substance: ARIPIPRAZOLE
     Dosage: UNK, QD (STRENGTH: 30MG, TAKE ONE-HALF TABLET
     Route: 048
     Dates: start: 20110103, end: 20120104
  2. ABILIFY [Suspect]
     Active Substance: ARIPIPRAZOLE
     Indication: PRODUCT USED FOR UNKNOWN INDICATION
     Dosage: UNK
     Route: 065
     Dates: start: 2010, end: 2017
  3. ARIPIPRAZOLE. [Concomitant]
     Active Substance: ARIPIPRAZOLE
     Dosage: UNK, QD (STRENGTH: 30MG, TAKE ONE-HALF TABLET
     Route: 048
     Dates: start: 20100730, end: 20110731
  4. ARIPIPRAZOLE. [Concomitant]
     Active Substance: ARIPIPRAZOLE
     Dosage: UNK, QD (STRENGTH: 20MG, TAKE ONE-HALF TABLET
     Route: 048
     Dates: start: 20100707, end: 20110708
  5. ARIPIPRAZOLE. [Concomitant]
     Active Substance: ARIPIPRAZOLE
     Indication: BIPOLAR DISORDER
     Dosage: UNK, QD (STRENGTH: 10MG, TAKE ONE HALF MY MOUTH EVERY MORNING, THEN TAKE ONE TABLET EVERY MORNI
     Route: 048
     Dates: start: 20130308, end: 20140309
  6. ARIPIPRAZOLE. [Concomitant]
     Active Substance: ARIPIPRAZOLE
     Dosage: UNK, QD (STRENGTH: 30MG, TAKE ONE-HALF TABLET
     Route: 048
     Dates: start: 20110503, end: 20120503
  7. ARIPIPRAZOLE. [Concomitant]
     Active Substance: ARIPIPRAZOLE
     Dosage: UNK, QD (STRENGTH: 30MG, TAKE ONE-HALF TABLET
     Route: 048
     Dates: start: 20110202, end: 20120203

REACTIONS (8)
  - Injury [Unknown]
  - Condition aggravated [Unknown]
  - Pain [Unknown]
  - Disability [Unknown]
  - Emotional distress [Unknown]
  - Anxiety [Unknown]
  - Economic problem [Unknown]
  - Anhedonia [Unknown]
